FAERS Safety Report 15845276 (Version 1)
Quarter: 2019Q1

REPORT INFORMATION
  Report Type: Spontaneous
  Country: FR (occurrence: FR)
  Receive Date: 20190119
  Receipt Date: 20190119
  Transmission Date: 20190417
  Serious: Yes (Other)
  Sender: FDA-Public Use
  Company Number: FR-ACCORD-102436

PATIENT
  Age: 52 Year
  Sex: Female

DRUGS (9)
  1. FLUOROURACIL ACCORD [Suspect]
     Active Substance: FLUOROURACIL
     Indication: ANAL SQUAMOUS CELL CARCINOMA
     Dosage: 400 MG + 2400 MG/M2
     Route: 042
  2. TAHOR [Concomitant]
     Active Substance: ATORVASTATIN CALCIUM
  3. PLAQUENIL [Concomitant]
     Active Substance: HYDROXYCHLOROQUINE SULFATE
  4. KENZEN [Concomitant]
     Active Substance: CANDESARTAN
  5. CORTANCYL [Concomitant]
     Active Substance: PREDNISONE
  6. LYSANXIA [Concomitant]
     Active Substance: PRAZEPAM
  7. DOLIPRANE [Concomitant]
     Active Substance: ACETAMINOPHEN
  8. ASPIRINE [Concomitant]
     Active Substance: ASPIRIN
  9. CISPLATIN ACCORD [Suspect]
     Active Substance: CISPLATIN
     Indication: ANAL SQUAMOUS CELL CARCINOMA
     Route: 042

REACTIONS (2)
  - Systemic lupus erythematosus [Unknown]
  - Off label use [Unknown]

NARRATIVE: CASE EVENT DATE: 20180524
